FAERS Safety Report 25773346 (Version 1)
Quarter: 2025Q3

REPORT INFORMATION
  Report Type: Spontaneous
  Country: US (occurrence: US)
  Receive Date: 20250908
  Receipt Date: 20250908
  Transmission Date: 20251020
  Serious: No
  Sender: SANOFI AVENTIS
  Company Number: US-SA-2025SA266542

PATIENT
  Age: 80 Year
  Sex: Male
  Weight: 81.82 kg

DRUGS (20)
  1. KEVZARA [Suspect]
     Active Substance: SARILUMAB
     Indication: Rheumatoid arthritis
     Dosage: 200 MG, QOW
     Route: 058
  2. FARXIGA [Concomitant]
     Active Substance: DAPAGLIFLOZIN PROPANEDIOL
  3. FEXOFENADINE HYDROCHLORIDE [Concomitant]
     Active Substance: FEXOFENADINE HYDROCHLORIDE
  4. VITAMIN B12 [Concomitant]
     Active Substance: CYANOCOBALAMIN
  5. VITAMINS [Concomitant]
     Active Substance: VITAMINS
  6. VENTOLIN HFA [Concomitant]
     Active Substance: ALBUTEROL SULFATE
  7. ACETAMINOPHEN [Concomitant]
     Active Substance: ACETAMINOPHEN
  8. HYDROXYCHLOROQUINE SULFATE [Concomitant]
     Active Substance: HYDROXYCHLOROQUINE SULFATE
  9. BENAZEPRIL HYDROCHLORIDE [Concomitant]
     Active Substance: BENAZEPRIL HYDROCHLORIDE
  10. ATORVASTATIN CALCIUM [Concomitant]
     Active Substance: ATORVASTATIN CALCIUM
  11. KLOR-CON M20 [Concomitant]
     Active Substance: POTASSIUM CHLORIDE
  12. ALLOPURINOL [Concomitant]
     Active Substance: ALLOPURINOL
  13. CARVEDILOL [Concomitant]
     Active Substance: CARVEDILOL
  14. HYDROCHLOROTHIAZIDE\TRIAMTERENE [Concomitant]
     Active Substance: HYDROCHLOROTHIAZIDE\TRIAMTERENE
  15. OZEMPIC [Concomitant]
     Active Substance: SEMAGLUTIDE
  16. HUMALOG KWIKPEN [Concomitant]
     Active Substance: INSULIN LISPRO
  17. OMEPRAZOLE [Concomitant]
     Active Substance: OMEPRAZOLE
  18. FUROSEMIDE [Concomitant]
     Active Substance: FUROSEMIDE
  19. MONTELUKAST SODIUM [Concomitant]
     Active Substance: MONTELUKAST SODIUM
  20. PREDNISONE [Concomitant]
     Active Substance: PREDNISONE

REACTIONS (3)
  - Tooth abscess [Recovering/Resolving]
  - Tooth infection [Recovering/Resolving]
  - Pain [Recovering/Resolving]

NARRATIVE: CASE EVENT DATE: 20250822
